FAERS Safety Report 9871720 (Version 1)
Quarter: 2014Q1

REPORT INFORMATION
  Report Type: Spontaneous
  Country: US (occurrence: US)
  Receive Date: 20140205
  Receipt Date: 20140205
  Transmission Date: 20141002
  Serious: No
  Sender: FDA-Public Use
  Company Number: US-AMGEN-USASP2013024250

PATIENT
  Sex: Female

DRUGS (8)
  1. NEULASTA [Suspect]
     Indication: PRODUCT USED FOR UNKNOWN INDICATION
     Dosage: UNK
  2. ALOXI [Concomitant]
     Dosage: UNK
  3. DEXOL                              /00016001/ [Concomitant]
     Dosage: UNK
  4. BENADRYL                           /00000402/ [Concomitant]
     Dosage: UNK
  5. ZANTAC [Concomitant]
     Dosage: UNK
  6. EMEND                              /01627301/ [Concomitant]
     Dosage: UNK
  7. CYTOXAN [Concomitant]
     Indication: BREAST CANCER
     Dosage: UNK
  8. ADRIAMYCIN                         /00330901/ [Concomitant]
     Indication: BREAST CANCER
     Dosage: UNK

REACTIONS (5)
  - Somnolence [Unknown]
  - Fatigue [Unknown]
  - Nausea [Unknown]
  - Abdominal pain upper [Unknown]
  - Dizziness [Unknown]
